FAERS Safety Report 4732676-3 (Version None)
Quarter: 2005Q3

REPORT INFORMATION
  Report Type: 
  Country: None (occurrence: None)
  Receive Date: 20050803
  Receipt Date: 20050727
  Transmission Date: 20060218
  Serious: Yes (Other)
  Sender: FDA-Public Use
  Company Number: 2005UW11180

PATIENT
  Age: 668 Month
  Sex: Female
  Weight: 59 kg

DRUGS (2)
  1. XYLOCAINE [Suspect]
     Indication: ALLERGY TEST
     Dates: start: 20041101
  2. XYLOCAINE [Suspect]
     Dates: start: 20041101

REACTIONS (3)
  - ABASIA [None]
  - MUSCULAR WEAKNESS [None]
  - SPEECH DISORDER [None]
